FAERS Safety Report 9648227 (Version 1)
Quarter: 2013Q4

REPORT INFORMATION
  Report Type: Spontaneous
  Country: US (occurrence: None)
  Receive Date: 20131024
  Receipt Date: 20131024
  Transmission Date: 20140711
  Serious: No
  Sender: FDA-Public Use
  Company Number: None

PATIENT
  Age: 65 Year
  Sex: Female
  Weight: 92.99 kg

DRUGS (4)
  1. PYLERA [Suspect]
     Indication: HELICOBACTER INFECTION
     Dosage: 3X DAILY; 1 AT BEDTIME
     Route: 048
     Dates: start: 20130718, end: 20130814
  2. TRANXENE [Concomitant]
  3. MACRODANTIN [Concomitant]
  4. TYLENOL XT [Concomitant]

REACTIONS (5)
  - Hypoaesthesia [None]
  - Paraesthesia [None]
  - Musculoskeletal stiffness [None]
  - Muscle spasms [None]
  - Pain [None]
